FAERS Safety Report 8006092-5 (Version None)
Quarter: 2011Q4

REPORT INFORMATION
  Report Type: 
  Country: None (occurrence: None)
  Receive Date: 20111226
  Receipt Date: 20111214
  Transmission Date: 20120403
  Serious: Yes (Death, Other)
  Sender: FDA-Public Use
  Company Number: US-PAR PHARMACEUTICAL, INC-2011SCPR003521

PATIENT
  Age: 49 Year
  Sex: Female

DRUGS (1)
  1. DOXEPIN [Suspect]
     Indication: PRODUCT USED FOR UNKNOWN INDICATION
     Dosage: 60 DOXEPIN TABLETS, UNKNOWN
     Route: 048

REACTIONS (8)
  - DEATH [None]
  - COMPLETED SUICIDE [None]
  - BLOOD PH INCREASED [None]
  - ENCEPHALOPATHY [None]
  - ELECTROCARDIOGRAM QT PROLONGED [None]
  - BLOOD SODIUM INCREASED [None]
  - TOXICITY TO VARIOUS AGENTS [None]
  - BRAIN HERNIATION [None]
